FAERS Safety Report 5115871-3 (Version None)
Quarter: 2006Q3

REPORT INFORMATION
  Report Type: 
  Country: None (occurrence: None)
  Receive Date: 20060926
  Receipt Date: 20060926
  Transmission Date: 20061208
  Serious: Yes (Disabling)
  Sender: FDA-Public Use
  Company Number: None

PATIENT
  Age: 75 Year
  Sex: Male

DRUGS (2)
  1. ASPIRIN [Suspect]
     Dosage: PO
     Route: 048
  2. RETEVASE [Suspect]
     Dosage: IV
     Route: 042

REACTIONS (1)
  - HAEMORRHAGE [None]
